FAERS Safety Report 8363053-4 (Version None)
Quarter: 2012Q2

REPORT INFORMATION
  Report Type: 
  Country: None (occurrence: None)
  Receive Date: 20120516
  Receipt Date: 20120509
  Transmission Date: 20120825
  Serious: Yes (Other)
  Sender: FDA-Public Use
  Company Number: JP-ASTELLAS-2012JP004144

PATIENT
  Sex: Female
  Weight: 44 kg

DRUGS (3)
  1. FOSFLUCONAZOLE [Concomitant]
     Indication: CANDIDIASIS
     Route: 065
  2. VANCOMYCIN [Concomitant]
     Indication: DEVICE RELATED INFECTION
     Dosage: 1 G, BID
     Route: 065
  3. FUNGUARD [Suspect]
     Indication: CANDIDIASIS
     Dosage: 100 MG, UID/QD
     Route: 065

REACTIONS (3)
  - DRUG INEFFECTIVE [None]
  - FUNGAEMIA [None]
  - CANDIDA ENDOPHTHALMITIS [None]
